FAERS Safety Report 11820117 (Version 1)
Quarter: 2015Q4

REPORT INFORMATION
  Report Type: Report from Study
  Country: BE (occurrence: BE)
  Receive Date: 20151210
  Receipt Date: 20151210
  Transmission Date: 20160305
  Serious: Yes (Other)
  Sender: FDA-Public Use
  Company Number: BE-ROCHE-1361480

PATIENT

DRUGS (3)
  1. CAPECITABINE. [Suspect]
     Active Substance: CAPECITABINE
     Indication: COLORECTAL CANCER METASTATIC
     Dosage: DAY 1-14 EVERY 21 DAY
     Route: 065
  2. SORAFENIB [Suspect]
     Active Substance: SORAFENIB
     Indication: COLORECTAL CANCER METASTATIC
     Route: 065
  3. SORAFENIB [Suspect]
     Active Substance: SORAFENIB
     Route: 065

REACTIONS (17)
  - Fatigue [Unknown]
  - Decreased appetite [Unknown]
  - Rash [Unknown]
  - Nausea [Unknown]
  - Septic shock [Unknown]
  - Palmar-plantar erythrodysaesthesia syndrome [Unknown]
  - Thrombocytopenia [Unknown]
  - Neutropenia [Unknown]
  - Diarrhoea [Unknown]
  - Abdominal pain [Unknown]
  - Weight decreased [Unknown]
  - Gastrointestinal perforation [Unknown]
  - Pancreatitis acute [Unknown]
  - Stomatitis [Unknown]
  - Anaemia [Unknown]
  - Hypertension [Unknown]
  - Gastrointestinal haemorrhage [Unknown]
